FAERS Safety Report 5964081-6 (Version None)
Quarter: 2008Q4

REPORT INFORMATION
  Report Type: 
  Country: None (occurrence: None)
  Receive Date: 20081119
  Receipt Date: 20080815
  Transmission Date: 20090506
  Serious: No
  Sender: FDA-Public Use
  Company Number: WAES 0808USA02817

PATIENT
  Age: 77 Year
  Sex: Male

DRUGS (21)
  1. JANUVIA [Suspect]
     Indication: TYPE 2 DIABETES MELLITUS
     Dosage: 100 MG/DAILY/PO
     Route: 048
     Dates: start: 20070101
  2. AVODART [Concomitant]
  3. DIOVAN [Concomitant]
  4. SPIRIVA [Concomitant]
  5. TEKTURNA [Concomitant]
  6. TYLENOL (CAPLET) [Concomitant]
  7. ALBUTEROL [Concomitant]
  8. ALLOPURINOL [Concomitant]
  9. ALPRAZOLAM [Concomitant]
  10. ASPIRIN [Concomitant]
  11. BENZONATATE [Concomitant]
  12. BROMINE [Concomitant]
  13. COLCHICINE [Concomitant]
  14. CORTICOSTEROIDS (UNSPECIFIED) [Concomitant]
  15. FUROSEMIDE [Concomitant]
  16. QUAIFENESIN [Concomitant]
  17. LEVOTHYROXINE SODIUM [Concomitant]
  18. PANTOPRAZOLE SODIUM [Concomitant]
  19. PREDNISONE TAB [Concomitant]
  20. PROMETHAZINE [Concomitant]
  21. TEMAZEPAM [Concomitant]

REACTIONS (1)
  - RENAL PAIN [None]
